FAERS Safety Report 18486544 (Version 5)
Quarter: 2020Q4

REPORT INFORMATION
  Report Type: Spontaneous
  Country: US (occurrence: US)
  Receive Date: 20201110
  Receipt Date: 20201209
  Transmission Date: 20210114
  Serious: Yes (Other)
  Sender: FDA-Public Use
  Company Number: US-PFIZER INC-2020427846

PATIENT
  Age: 60 Year
  Sex: Female
  Weight: 59 kg

DRUGS (3)
  1. PREMARIN [Suspect]
     Active Substance: ESTROGENS, CONJUGATED
     Dosage: 5 MG, 2X/WEEK
     Route: 067
     Dates: start: 2016
  2. FOLIC ACID. [Concomitant]
     Active Substance: FOLIC ACID
     Dosage: UNK
     Dates: start: 2013
  3. EVENING PRIMROSE [Concomitant]
     Dosage: UNK
     Dates: start: 2016

REACTIONS (6)
  - Post-traumatic stress disorder [Unknown]
  - Decreased immune responsiveness [Unknown]
  - Papilloma viral infection [Unknown]
  - Disease recurrence [Unknown]
  - Sepsis [Unknown]
  - Infection [Unknown]
